FAERS Safety Report 16790382 (Version 1)
Quarter: 2019Q3

REPORT INFORMATION
  Report Type: Spontaneous
  Country: GB (occurrence: GB)
  Receive Date: 20190910
  Receipt Date: 20190910
  Transmission Date: 20191005
  Serious: Yes (Disabling)
  Sender: FDA-Public Use
  Company Number: GB-MYLANLABS-2019M1083623

PATIENT
  Age: 68 Year
  Sex: Female
  Weight: 82 kg

DRUGS (11)
  1. CODEINE PHOSPHATE [Concomitant]
     Active Substance: CODEINE PHOSPHATE
     Dosage: TAKE 1-2 4 TIMES/DAY
     Dates: start: 20170825
  2. PREDNISOLONE. [Concomitant]
     Active Substance: PREDNISOLONE
     Dosage: 8 DOSAGE FORM, QD
     Dates: start: 20190319
  3. FULTIUM D3 [Concomitant]
     Active Substance: CHOLECALCIFEROL
     Dosage: 1 DOSAGE FORM, QD
     Dates: start: 20150730
  4. CLONIDINE. [Concomitant]
     Active Substance: CLONIDINE
     Dosage: 4 DOSAGE FORM, QD
     Dates: start: 20160926
  5. CLENIL MODULITE [Concomitant]
     Active Substance: BECLOMETHASONE DIPROPIONATE
     Dosage: 4 DOSAGE FORM, QD
     Route: 055
     Dates: start: 20181116
  6. AMOXICILLIN. [Concomitant]
     Active Substance: AMOXICILLIN
     Dosage: 3 DOSAGE FORM, QD
     Dates: start: 20190321
  7. CLARITHROMYCIN. [Suspect]
     Active Substance: CLARITHROMYCIN
     Indication: CHRONIC OBSTRUCTIVE PULMONARY DISEASE
     Dosage: 500 MILLIGRAM, BID
     Dates: start: 20190319
  8. PARACETAMOL [Concomitant]
     Active Substance: ACETAMINOPHEN
     Dosage: FOUR TIMES A DAY
     Dates: start: 20151030
  9. LANSOPRAZOLE. [Concomitant]
     Active Substance: LANSOPRAZOLE
     Indication: PROPHYLAXIS AGAINST GASTROINTESTINAL ULCER
     Dosage: TO PROTECT TUMMY WHEN ON IBUPROFEN
     Dates: start: 20190319
  10. IBUPROFEN. [Concomitant]
     Active Substance: IBUPROFEN
     Indication: PAIN
     Dosage: UP TO TO BE TAKEN FOUR TIMES DAILY WITH FOOD
     Dates: start: 20190319
  11. ACIDEX                             /01521901/ [Concomitant]
     Active Substance: CALCIUM CARBONATE\SODIUM ALGINATE\SODIUM BICARBONATE
     Dosage: TAKE TWO TO FOUR 5ML SPOONFULS AFTER MEALS
     Dates: start: 20180820

REACTIONS (2)
  - Facial pain [Unknown]
  - Migraine [Recovering/Resolving]

NARRATIVE: CASE EVENT DATE: 20190321
